FAERS Safety Report 5852143-3 (Version None)
Quarter: 2008Q3

REPORT INFORMATION
  Report Type: 
  Country: None (occurrence: None)
  Receive Date: 20080819
  Receipt Date: 20080804
  Transmission Date: 20090109
  Serious: Yes (Hospitalization)
  Sender: FDA-Public Use
  Company Number: 2008BI015784

PATIENT
  Age: 30 Year
  Sex: Female
  Weight: 102.0593 kg

DRUGS (6)
  1. TYSABRI [Suspect]
     Indication: MULTIPLE SCLEROSIS
     Dosage: 300 MG;QM;IV
     Route: 042
     Dates: start: 20080513
  2. SERTRALINE [Concomitant]
  3. DOXEPIN HCL [Concomitant]
  4. BACLOFEN [Concomitant]
  5. ZANTAC [Concomitant]
  6. LYRICA [Concomitant]

REACTIONS (4)
  - DEEP VEIN THROMBOSIS [None]
  - MUSCLE SPASMS [None]
  - OEDEMA PERIPHERAL [None]
  - SKIN ULCER [None]
